FAERS Safety Report 9879991 (Version 1)
Quarter: 2014Q1

REPORT INFORMATION
  Report Type: Spontaneous
  Country: IT (occurrence: IT)
  Receive Date: 20140207
  Receipt Date: 20140207
  Transmission Date: 20141002
  Serious: Yes (Other)
  Sender: FDA-Public Use
  Company Number: IT-ROCHE-1344876

PATIENT
  Age: 87 Year
  Sex: Female

DRUGS (1)
  1. ZELBORAF [Suspect]
     Indication: METASTATIC MALIGNANT MELANOMA
     Route: 048
     Dates: start: 20130810, end: 20131126

REACTIONS (3)
  - Back pain [Recovering/Resolving]
  - Confusional state [Recovering/Resolving]
  - Ileus paralytic [Recovering/Resolving]
